FAERS Safety Report 9656391 (Version 1)
Quarter: 2013Q4

REPORT INFORMATION
  Report Type: Spontaneous
  Country: US (occurrence: US)
  Receive Date: 20131030
  Receipt Date: 20131030
  Transmission Date: 20140711
  Serious: Yes (Death, Hospitalization)
  Sender: FDA-Public Use
  Company Number: US-AMGEN-USASP2013076071

PATIENT
  Age: 83 Year
  Sex: Female

DRUGS (2)
  1. ENBREL [Suspect]
     Indication: RHEUMATOID ARTHRITIS
     Dosage: 50 MG, QWK
     Route: 065
     Dates: start: 20130801
  2. ENBREL [Suspect]
     Dosage: UNK
     Route: 065

REACTIONS (7)
  - Metastatic neoplasm [Fatal]
  - Metastases to pancreas [Fatal]
  - Metastases to liver [Fatal]
  - Metastases to bone [Fatal]
  - Lung neoplasm malignant [Fatal]
  - Pleural effusion [Not Recovered/Not Resolved]
  - Pneumonia [Unknown]
